FAERS Safety Report 5528750-4 (Version None)
Quarter: 2007Q4

REPORT INFORMATION
  Report Type: 
  Country: None (occurrence: None)
  Receive Date: 20071115
  Receipt Date: 20070926
  Transmission Date: 20080405
  Serious: Yes (Death)
  Sender: FDA-Public Use
  Company Number: MSER20070019

PATIENT
  Age: 32 Year
  Sex: Male
  Weight: 74.8435 kg

DRUGS (13)
  1. MORPHINE [Suspect]
     Dates: end: 20070301
  2. OXYMORPHONE HCL [Suspect]
     Dates: end: 20070301
  3. THC [Concomitant]
  4. MIDAZOLAM HCL [Concomitant]
  5. PHENOBARBITAL TAB [Concomitant]
  6. PHENYTOIN [Concomitant]
  7. SERTRALINE [Concomitant]
  8. DIAZEPAM [Concomitant]
  9. OXAZEPAM [Concomitant]
  10. TEMAZEPAM [Concomitant]
  11. LORAZEPAM [Concomitant]
  12. CAFFEINE CITRATE [Concomitant]
  13. NICOTINE [Concomitant]

REACTIONS (3)
  - BRAIN OEDEMA [None]
  - DRUG TOXICITY [None]
  - PULMONARY OEDEMA [None]
